FAERS Safety Report 11099128 (Version 1)
Quarter: 2015Q2

REPORT INFORMATION
  Report Type: Spontaneous
  Country: JP (occurrence: JP)
  Receive Date: 20150508
  Receipt Date: 20150508
  Transmission Date: 20150821
  Serious: Yes (Hospitalization)
  Sender: FDA-Public Use
  Company Number: JP-ROCHE-1574615

PATIENT
  Age: 53 Year
  Sex: Female

DRUGS (1)
  1. CAPECITABINE. [Suspect]
     Active Substance: CAPECITABINE
     Indication: COLON CANCER
     Route: 048

REACTIONS (6)
  - Vomiting [Recovering/Resolving]
  - Stomatitis [Recovering/Resolving]
  - Loss of consciousness [Recovering/Resolving]
  - Pyrexia [Recovering/Resolving]
  - Disseminated intravascular coagulation [Recovering/Resolving]
  - Diarrhoea [Recovering/Resolving]
